FAERS Safety Report 7736472-4 (Version None)
Quarter: 2011Q3

REPORT INFORMATION
  Report Type: 
  Country: None (occurrence: None)
  Receive Date: 20110902
  Receipt Date: 20110824
  Transmission Date: 20111222
  Serious: Yes (Death)
  Sender: FDA-Public Use
  Company Number: 2011MA012536

PATIENT
  Age: 57 Year
  Sex: Male

DRUGS (2)
  1. VINORELBINE [Suspect]
     Indication: MESOTHELIOMA
  2. GEMCITABINE [Suspect]
     Indication: MESOTHELIOMA

REACTIONS (1)
  - INTERSTITIAL LUNG DISEASE [None]
